FAERS Safety Report 7578870-8 (Version None)
Quarter: 2011Q2

REPORT INFORMATION
  Report Type: 
  Country: None (occurrence: None)
  Receive Date: 20110628
  Receipt Date: 20110623
  Transmission Date: 20111010
  Serious: Yes (Hospitalization)
  Sender: FDA-Public Use
  Company Number: JP-B.I. PHARMACEUTICALS,INC./RIDGEFIELD-2011-BP-16289NB

PATIENT
  Age: 78 Year
  Sex: Male

DRUGS (8)
  1. MUCOSTA [Concomitant]
     Dosage: UNK
     Route: 048
  2. BIOFERMIN [Concomitant]
     Dosage: NR
     Route: 065
  3. F LASE [Concomitant]
     Dosage: UNK
     Route: 048
  4. DISOPYRAMIDE PHOSPHATE [Concomitant]
     Dosage: UNK
     Route: 048
  5. MAGNESIUM OXIDE [Concomitant]
     Dosage: NR
     Route: 065
  6. PRADAXA [Suspect]
     Indication: ATRIAL FIBRILLATION
     Dosage: 300 MG
     Route: 048
     Dates: start: 20110611, end: 20110613
  7. GASMOTIN [Concomitant]
     Dosage: UNK
     Route: 048
  8. POLYFUL [Concomitant]
     Dosage: NR
     Route: 065

REACTIONS (4)
  - CEREBELLAR HAEMORRHAGE [None]
  - NAUSEA [None]
  - DEHYDRATION [None]
  - DECREASED APPETITE [None]
